FAERS Safety Report 9439966 (Version 1)
Quarter: 2013Q3

REPORT INFORMATION
  Report Type: Spontaneous
  Country: CA (occurrence: CA)
  Receive Date: 20130805
  Receipt Date: 20130805
  Transmission Date: 20140515
  Serious: Yes (Other)
  Sender: FDA-Public Use
  Company Number: CA-ELI_LILLY_AND_COMPANY-CA201307010611

PATIENT
  Sex: Male

DRUGS (1)
  1. HUMULIN 30% REGULAR, 70% NPH [Suspect]
     Dosage: UNK, UNKNOWN

REACTIONS (2)
  - Retinal haemorrhage [Unknown]
  - Visual impairment [Unknown]
